FAERS Safety Report 12903434 (Version 1)
Quarter: 2016Q4

REPORT INFORMATION
  Report Type: Spontaneous
  Country: US (occurrence: US)
  Receive Date: 20161102
  Receipt Date: 20161102
  Transmission Date: 20170207
  Serious: Yes (Other)
  Sender: FDA-Public Use
  Company Number: US-UNITED THERAPEUTICS-UNT-2016-014217

PATIENT
  Age: 76 Year
  Sex: Male
  Weight: 123.4 kg

DRUGS (5)
  1. REMODULIN [Suspect]
     Active Substance: TREPROSTINIL
     Indication: PULMONARY ARTERIAL HYPERTENSION
     Dosage: 0.003 ?G/KG, CONTINUING
     Route: 058
     Dates: start: 20160830
  2. REMODULIN [Suspect]
     Active Substance: TREPROSTINIL
     Dosage: UNK
     Route: 058
  3. REMODULIN [Suspect]
     Active Substance: TREPROSTINIL
     Dosage: 0.006 ?G/KG, CONTINUING
     Route: 058
  4. REMODULIN [Suspect]
     Active Substance: TREPROSTINIL
     Dosage: 0.01 ?G/KG, CONTINUING
     Route: 058
  5. OFEV [Concomitant]
     Active Substance: NINTEDANIB
     Indication: PRODUCT USED FOR UNKNOWN INDICATION

REACTIONS (11)
  - Renal impairment [Unknown]
  - Decreased appetite [Unknown]
  - Infusion site erythema [Unknown]
  - Pain in extremity [Unknown]
  - Influenza like illness [Unknown]
  - Device issue [Unknown]
  - Infusion site swelling [Unknown]
  - Nausea [Recovered/Resolved]
  - Arthralgia [Recovered/Resolved]
  - Back pain [Unknown]
  - Infusion site pain [Unknown]

NARRATIVE: CASE EVENT DATE: 201609
